FAERS Safety Report 7493232-X (Version None)
Quarter: 2011Q2

REPORT INFORMATION
  Report Type: 
  Country: None (occurrence: None)
  Receive Date: 20110520
  Receipt Date: 20110512
  Transmission Date: 20111010
  Serious: Yes (Hospitalization)
  Sender: FDA-Public Use
  Company Number: IT-TYCO HEALTHCARE/MALLINCKRODT-T201100955

PATIENT
  Sex: Male

DRUGS (2)
  1. EXJADE [Concomitant]
     Dosage: 1750 MG, UNK
     Route: 048
  2. OPTIRAY 300 [Suspect]
     Indication: COMPUTERISED TOMOGRAM THORAX
     Dosage: 50 ML, SINGLE
     Route: 042
     Dates: start: 20110328, end: 20110328

REACTIONS (1)
  - RENAL FAILURE ACUTE [None]
